FAERS Safety Report 9038934 (Version 1)
Quarter: 2013Q1

REPORT INFORMATION
  Report Type: Report from Study
  Country: US (occurrence: US)
  Receive Date: 20130129
  Receipt Date: 20130129
  Transmission Date: 20140127
  Serious: No
  Sender: FDA-Public Use
  Company Number: US-ABBOTT-12P-163-0931220-00

PATIENT
  Age: 30 Year
  Sex: Female
  Weight: 111.23 kg

DRUGS (1)
  1. HUMIRA 40 MG/0.8 ML PEN [Suspect]
     Indication: PSORIATIC ARTHROPATHY
     Dates: start: 20111001, end: 20111230

REACTIONS (6)
  - Cardiac murmur [Not Recovered/Not Resolved]
  - Atypical pneumonia [Recovered/Resolved]
  - Chest discomfort [Recovered/Resolved]
  - Productive cough [Recovered/Resolved]
  - Right atrial dilatation [Not Recovered/Not Resolved]
  - Heart valve incompetence [Not Recovered/Not Resolved]
